FAERS Safety Report 8827148 (Version 3)
Quarter: 2014Q3

REPORT INFORMATION
  Report Type: Report from Study
  Country: US (occurrence: US)
  Receive Date: 20121005
  Receipt Date: 20140904
  Transmission Date: 20150326
  Serious: Yes (Hospitalization, Other)
  Sender: FDA-Public Use
  Company Number: US-ROCHE-1132389

PATIENT
  Sex: Female

DRUGS (11)
  1. CHLORAMBUCIL [Concomitant]
     Active Substance: CHLORAMBUCIL
  2. PAXIL (UNITED STATES) [Concomitant]
  3. RITUXAN [Suspect]
     Active Substance: RITUXIMAB
     Dosage: FURTHER DOSES ON 04/MAY/2000, 10/MAY/2000, 17/MAY/2000, 24/MAY/2000, 31/MAY/2000, 09/JUN/2000, 15/JU
     Route: 042
     Dates: start: 20000426
  4. VITAMIN E [Concomitant]
     Active Substance: .ALPHA.-TOCOPHEROL
  5. BENADRYL [Concomitant]
     Active Substance: DIPHENHYDRAMINE HYDROCHLORIDE
  6. FLUDARA [Concomitant]
     Active Substance: FLUDARABINE PHOSPHATE
  7. FARESTON [Concomitant]
     Active Substance: TOREMIFENE CITRATE
  8. RITUXAN [Suspect]
     Active Substance: RITUXIMAB
     Indication: CHRONIC LYMPHOCYTIC LEUKAEMIA
     Dosage: FOR 4 WEEKS
     Route: 042
     Dates: start: 19990524
  9. DARVOCET [Concomitant]
     Active Substance: ACETAMINOPHEN\PROPOXYPHENE HYDROCHLORIDE
  10. FLAGYL [Concomitant]
     Active Substance: METRONIDAZOLE\METRONIDAZOLE HYDROCHLORIDE
  11. CIPRO [Concomitant]
     Active Substance: CIPROFLOXACIN HYDROCHLORIDE

REACTIONS (14)
  - Immunoglobulins decreased [Unknown]
  - Pain [Unknown]
  - Asthenia [Unknown]
  - Somnolence [Unknown]
  - Fatigue [Not Recovered/Not Resolved]
  - Insomnia [Unknown]
  - Hypogammaglobulinaemia [Unknown]
  - Pyrexia [Unknown]
  - Lymphadenopathy [Unknown]
  - Pleural effusion [Unknown]
  - Bronchitis chronic [Unknown]
  - Disease progression [Unknown]
  - Hypoacusis [Unknown]
  - Malaise [Unknown]
